FAERS Safety Report 9028032 (Version 2)
Quarter: 2013Q1

REPORT INFORMATION
  Report Type: Spontaneous
  Country: US (occurrence: US)
  Receive Date: 20130123
  Receipt Date: 20130315
  Transmission Date: 20140127
  Serious: Yes (Other)
  Sender: FDA-Public Use
  Company Number: US-JNJFOC-20130108086

PATIENT
  Age: 72 Year
  Sex: Male
  Weight: 83.92 kg

DRUGS (11)
  1. XARELTO [Suspect]
     Indication: CEREBROVASCULAR ACCIDENT PROPHYLAXIS
     Route: 048
     Dates: start: 20130107
  2. XARELTO [Suspect]
     Indication: ATRIAL FIBRILLATION
     Route: 048
     Dates: start: 20130107
  3. DIGOXIN [Concomitant]
     Indication: HEART RATE
     Route: 048
  4. PRAVASTATIN [Concomitant]
     Indication: BLOOD CHOLESTEROL
     Route: 048
  5. MELOXICAM [Concomitant]
     Indication: ARTHRITIS
     Route: 048
  6. MULTIVITAMINS [Concomitant]
     Indication: MEDICAL DIET
     Route: 048
  7. GLUCOSAMINE / CHONDROITIN [Concomitant]
     Indication: MEDICAL DIET
     Route: 048
  8. FLAXSEED OIL [Concomitant]
     Indication: MEDICAL DIET
     Route: 048
  9. ACIDOPHILUS [Concomitant]
     Indication: MEDICAL DIET
     Route: 048
  10. UNKNOWN MEDICATION [Concomitant]
     Indication: ASTHMA
     Route: 055
  11. CETIRIZINE [Concomitant]
     Indication: MULTIPLE ALLERGIES
     Route: 048

REACTIONS (1)
  - Arrhythmia [Not Recovered/Not Resolved]
